FAERS Safety Report 9459429 (Version 1)
Quarter: 2013Q3

REPORT INFORMATION
  Report Type: Spontaneous
  Country: FI (occurrence: FI)
  Receive Date: 20130815
  Receipt Date: 20130815
  Transmission Date: 20140515
  Serious: Yes (Other)
  Sender: FDA-Public Use
  Company Number: FI-009507513-1308FIN004792

PATIENT
  Sex: Female

DRUGS (1)
  1. NUVARING [Suspect]
     Dosage: UNK
     Route: 067

REACTIONS (3)
  - Abortion induced [Unknown]
  - Product quality issue [Unknown]
  - Unintended pregnancy [Recovered/Resolved]
